FAERS Safety Report 4496468-5 (Version None)
Quarter: 2004Q4

REPORT INFORMATION
  Report Type: 
  Country: None (occurrence: None)
  Receive Date: 20041109
  Receipt Date: 20041104
  Transmission Date: 20050328
  Serious: Yes (Hospitalization)
  Sender: FDA-Public Use
  Company Number: PHBS2004CA14901

PATIENT
  Age: 63 Year
  Sex: Female

DRUGS (2)
  1. DIOVAN HCT [Suspect]
     Dosage: VAL 160 / HCT 25 MG/DAY
     Route: 048
  2. METHOTREXATE [Concomitant]

REACTIONS (2)
  - ALVEOLITIS ALLERGIC [None]
  - PULMONARY FIBROSIS [None]
